FAERS Safety Report 7033654-4 (Version None)
Quarter: 2010Q4

REPORT INFORMATION
  Report Type: 
  Country: None (occurrence: None)
  Receive Date: 20101005
  Receipt Date: 20100920
  Transmission Date: 20110411
  Serious: Yes (Other)
  Sender: FDA-Public Use
  Company Number: 2010-3047

PATIENT
  Age: 50 Year
  Sex: Female
  Weight: 48 kg

DRUGS (5)
  1. DYSPORT [Suspect]
     Indication: SKIN WRINKLING
     Dosage: 20 UNITS (20 UNITS, SINGLE CYCLE), INTRADERMAL
     Route: 023
     Dates: start: 20100826, end: 20100826
  2. PREDNISOLONE [Concomitant]
  3. VITAMIN D [Concomitant]
  4. ZOLEDRONIC ACID [Concomitant]
  5. CALCIUM CARBONATE [Concomitant]

REACTIONS (4)
  - ECCHYMOSIS [None]
  - ERYTHEMA [None]
  - EYELID PTOSIS [None]
  - SWELLING [None]
